FAERS Safety Report 19890038 (Version 2)
Quarter: 2021Q4

REPORT INFORMATION
  Report Type: Spontaneous
  Country: NL (occurrence: NL)
  Receive Date: 20210927
  Receipt Date: 20211001
  Transmission Date: 20220304
  Serious: Yes (Life-Threatening, Hospitalization, Other)
  Sender: FDA-Public Use
  Company Number: None

PATIENT
  Age: 71 Year
  Sex: Male
  Weight: 83 kg

DRUGS (2)
  1. CAPECITABINE [Suspect]
     Active Substance: CAPECITABINE
     Indication: Rectosigmoid cancer metastatic
     Dosage: 2E CYCLUS CAPOX OP 01-04-2021
     Dates: start: 20210312, end: 20210401
  2. OXALIPLATIN [Suspect]
     Active Substance: OXALIPLATIN
     Indication: Rectosigmoid cancer metastatic
     Dosage: 2E CYCLUS CAPOX OP 01-04-2021
     Dates: start: 20210312, end: 20210401

REACTIONS (1)
  - Pneumatosis intestinalis [Recovering/Resolving]

NARRATIVE: CASE EVENT DATE: 20210412
